FAERS Safety Report 18559632 (Version 1)
Quarter: 2020Q4

REPORT INFORMATION
  Report Type: Spontaneous
  Country: US (occurrence: US)
  Receive Date: 20201128
  Receipt Date: 20201128
  Transmission Date: 20210114
  Serious: Yes (Other)
  Sender: FDA-Public Use
  Company Number: None

PATIENT
  Age: 57 Year
  Sex: Male
  Weight: 117 kg

DRUGS (11)
  1. GABAPENTIN. [Concomitant]
     Active Substance: GABAPENTIN
  2. PROPRANOLOL [Concomitant]
     Active Substance: PROPRANOLOL HYDROCHLORIDE
  3. AMITRIPTYLINE [Concomitant]
     Active Substance: AMITRIPTYLINE
  4. LACTOBACILIS [Concomitant]
  5. FISH OIL [Concomitant]
     Active Substance: FISH OIL
  6. MILK THISTLE [Concomitant]
     Active Substance: DIETARY SUPPLEMENT\HERBALS\MILK THISTLE
  7. TRAMADOL MG [Suspect]
     Active Substance: TRAMADOL
  8. VIT D [Concomitant]
     Active Substance: VITAMIN D NOS
  9. MULTIVITAMIN [Concomitant]
     Active Substance: VITAMINS
  10. QUETIAPINE FUMARATE 300MG [Suspect]
     Active Substance: QUETIAPINE FUMARATE
     Indication: SLEEP DISORDER
     Dosage: ?          QUANTITY:1 TABLET(S);?
     Route: 048
  11. ATROVSTATIN [Concomitant]

REACTIONS (2)
  - Pain [None]
  - Restless legs syndrome [None]

NARRATIVE: CASE EVENT DATE: 20201014
